FAERS Safety Report 21561430 (Version 1)
Quarter: 2022Q4

REPORT INFORMATION
  Report Type: Spontaneous
  Country: US (occurrence: US)
  Receive Date: 20221107
  Receipt Date: 20221107
  Transmission Date: 20230112
  Serious: Yes (Other)
  Sender: FDA-Public Use
  Company Number: US-Calliditas-2022CAL00468

PATIENT
  Age: 53 Year
  Sex: Male
  Weight: 78 kg

DRUGS (2)
  1. TARPEYO [Suspect]
     Active Substance: BUDESONIDE
     Indication: IgA nephropathy
     Dosage: 16 MG (4 CAPSULES) DAILY
     Route: 048
     Dates: start: 20220726
  2. SILDENAFIL [Concomitant]
     Active Substance: SILDENAFIL
     Dosage: 20 - 40 MG AS NEEDED ; AS NECESSARY

REACTIONS (3)
  - Hypertension [Unknown]
  - Erectile dysfunction [Unknown]
  - Drug ineffective [Unknown]
